FAERS Safety Report 4344431-7 (Version None)
Quarter: 2004Q2

REPORT INFORMATION
  Report Type: 
  Country: None (occurrence: None)
  Receive Date: 20040419
  Receipt Date: 20040406
  Transmission Date: 20050107
  Serious: Yes (Hospitalization, Other)
  Sender: FDA-Public Use
  Company Number: EMADSS2003004284

PATIENT
  Age: 26 Year
  Sex: Male
  Weight: 101 kg

DRUGS (5)
  1. RISPERDAL [Suspect]
     Indication: PARANOIA
     Dosage: 6 MG, IN 1 DAY, ORAL
     Route: 048
     Dates: start: 20020601, end: 20030514
  2. RISPERDAL [Suspect]
     Indication: SCHIZOPHRENIA
     Dosage: 6 MG, IN 1 DAY, ORAL
     Route: 048
     Dates: start: 20020601, end: 20030514
  3. CIPRAMIL (CITALOPRAM HYDROBROMIDE)TABLETS [Suspect]
     Indication: DRUG USE FOR UNKNOWN INDICATION
     Dosage: 1 DOSE(S), IN 1 DAY, ORAL
     Route: 048
     Dates: start: 20020601, end: 20030509
  4. MULTIVITAMIN [Concomitant]
  5. CENTRUM VITAMINS (CENTRUM) [Concomitant]

REACTIONS (8)
  - CONDITION AGGRAVATED [None]
  - GENERAL NUTRITION DISORDER [None]
  - HEPATIC CIRRHOSIS [None]
  - HEPATIC FIBROSIS [None]
  - HEPATIC STEATOSIS [None]
  - HEPATITIS ACUTE [None]
  - HEPATOMEGALY [None]
  - PSYCHOTIC DISORDER [None]
